FAERS Safety Report 13693208 (Version 5)
Quarter: 2019Q1

REPORT INFORMATION
  Report Type: Report from Study
  Country: BR (occurrence: BR)
  Receive Date: 20170627
  Receipt Date: 20190201
  Transmission Date: 20190417
  Serious: Yes (Hospitalization, Other)
  Sender: FDA-Public Use
  Company Number: BR-UCBSA-2017021495

PATIENT
  Age: 19 Year
  Sex: Female
  Weight: 90 kg

DRUGS (11)
  1. DEXCHLORPHENIRAMINE MALEATE. [Concomitant]
     Active Substance: DEXCHLORPHENIRAMINE MALEATE
     Indication: PRODUCT USED FOR UNKNOWN INDICATION
  2. CERTOLIZUMAB PEGOL [Suspect]
     Active Substance: CERTOLIZUMAB PEGOL
     Indication: CROHN^S DISEASE
     Dosage: 400 MG, EV 2 WEEKS(QOW) (SYRINGES)
     Route: 058
     Dates: start: 20170501, end: 2017
  3. METRONIDAZOLE. [Concomitant]
     Active Substance: METRONIDAZOLE
     Indication: PRODUCT USED FOR UNKNOWN INDICATION
     Dosage: UNK
     Route: 042
     Dates: start: 20170616, end: 20170617
  4. AZATIOPRINA [Concomitant]
     Active Substance: AZATHIOPRINE
     Indication: CROHN^S DISEASE
     Dosage: 3 TABLETS PER DAY
     Route: 048
  5. DIPYRONE [Concomitant]
     Active Substance: DIPYRONE
     Indication: HEADACHE
     Dosage: UNK
     Dates: start: 201705
  6. METRONIDAZOLE. [Concomitant]
     Active Substance: METRONIDAZOLE
     Indication: PRODUCT USED FOR UNKNOWN INDICATION
     Dosage: 400MG (8/8H FOR 7 DAYS),
     Dates: start: 20170619
  7. HISTAMINE [Concomitant]
     Active Substance: HISTAMINE
     Indication: HYPERSENSITIVITY
     Dosage: 2 ML, AS NEEDED (PRN)
  8. CIPROFLOXACIN. [Concomitant]
     Active Substance: CIPROFLOXACIN
     Indication: PRODUCT USED FOR UNKNOWN INDICATION
     Dosage: UNK
     Route: 042
     Dates: start: 20170616, end: 20170617
  9. AZATHIOPRINE. [Concomitant]
     Active Substance: AZATHIOPRINE
     Indication: PRODUCT USED FOR UNKNOWN INDICATION
  10. CERTOLIZUMAB PEGOL [Suspect]
     Active Substance: CERTOLIZUMAB PEGOL
     Dosage: 400 MG, EV 4 WEEKS
     Route: 058
     Dates: end: 20181001
  11. CIPROFLOXACIN. [Concomitant]
     Active Substance: CIPROFLOXACIN
     Indication: PRODUCT USED FOR UNKNOWN INDICATION
     Dosage: 500MG (12/12H FOR 7 DAYS),
     Dates: start: 20170619

REACTIONS (14)
  - Drug ineffective [Unknown]
  - Hypersensitivity [Not Recovered/Not Resolved]
  - Vaginal abscess [Recovered/Resolved]
  - Rhinitis allergic [Recovered/Resolved]
  - Product storage error [Unknown]
  - Haematochezia [Not Recovered/Not Resolved]
  - Application site pain [Recovered/Resolved]
  - Dry skin [Unknown]
  - Seizure [Unknown]
  - Eye irritation [Unknown]
  - Furuncle [Not Recovered/Not Resolved]
  - Thyroid mass [Unknown]
  - Crohn^s disease [Not Recovered/Not Resolved]
  - Pruritus [Not Recovered/Not Resolved]

NARRATIVE: CASE EVENT DATE: 2017
